FAERS Safety Report 6169263-9 (Version None)
Quarter: 2009Q2

REPORT INFORMATION
  Report Type: 
  Country: None (occurrence: None)
  Receive Date: 20090424
  Receipt Date: 20090402
  Transmission Date: 20091009
  Serious: Yes (Hospitalization)
  Sender: FDA-Public Use
  Company Number: DSA_33517_2009

PATIENT
  Sex: Female

DRUGS (5)
  1. VASOTEC [Suspect]
     Indication: BLOOD PRESSURE
     Dosage: (DF ORAL)
     Route: 048
  2. NORVASC [Suspect]
     Indication: DRUG USE FOR UNKNOWN INDICATION
     Dosage: (DF)
  3. LOPRESSOR [Suspect]
     Indication: BLOOD PRESSURE
     Dosage: (DF TWICE DAILY)
  4. SYNTHROID [Concomitant]
  5. ASPIRIN [Concomitant]

REACTIONS (8)
  - CORONARY ARTERY DISEASE [None]
  - DEHYDRATION [None]
  - DIABETES MELLITUS [None]
  - DIARRHOEA [None]
  - HYPOTENSION [None]
  - HYPOTHYROIDISM [None]
  - PERITONEAL DIALYSIS COMPLICATION [None]
  - POST PROCEDURAL COMPLICATION [None]
